FAERS Safety Report 9456228 (Version 3)
Quarter: 2014Q1

REPORT INFORMATION
  Report Type: Spontaneous
  Country: US (occurrence: US)
  Receive Date: 20130813
  Receipt Date: 20140219
  Transmission Date: 20141002
  Serious: Yes (Hospitalization)
  Sender: FDA-Public Use
  Company Number: US-SANOFI-AVENTIS-BMS18983759

PATIENT
  Age: 67 Year
  Sex: Female

DRUGS (2)
  1. IRBESARTAN WINTHROP [Suspect]
     Dosage: HAS TAKEN GENERIC AVAPRO, BRAND UNKNOWN
     Route: 065
  2. LUCENTIS [Concomitant]

REACTIONS (9)
  - Neoplasm malignant [Unknown]
  - Gastrointestinal disorder [Unknown]
  - Hernia [Unknown]
  - Scar [Unknown]
  - Hypertension [Unknown]
  - Adverse event [Unknown]
  - Drug hypersensitivity [Unknown]
  - Stress [Unknown]
  - Headache [Unknown]
